FAERS Safety Report 8537143-7 (Version None)
Quarter: 2012Q3

REPORT INFORMATION
  Report Type: 
  Country: None (occurrence: None)
  Receive Date: 20120725
  Receipt Date: 20120717
  Transmission Date: 20120928
  Serious: Yes (Other)
  Sender: FDA-Public Use
  Company Number: US-VERTEX PHARMACEUTICALS INC.-AE-2012-008596

PATIENT
  Sex: Female

DRUGS (4)
  1. INCIVEK [Suspect]
     Indication: HEPATITIS C
     Route: 048
     Dates: start: 20120330, end: 20120611
  2. RIBAVIRIN [Concomitant]
     Indication: HEPATITIS C
     Dates: start: 20120330, end: 20120616
  3. RIBAVIRIN [Concomitant]
     Dates: start: 20120601
  4. PEGASYS [Concomitant]
     Indication: HEPATITIS C
     Dates: start: 20120330, end: 20120616

REACTIONS (9)
  - GINGIVAL BLISTER [None]
  - COUGH [None]
  - ANAEMIA [None]
  - ALOPECIA [None]
  - OEDEMA PERIPHERAL [None]
  - SCAR [None]
  - RASH GENERALISED [None]
  - PRURITUS [None]
  - SWELLING FACE [None]
